FAERS Safety Report 21363285 (Version 1)
Quarter: 2022Q3

REPORT INFORMATION
  Report Type: Spontaneous
  Country: ES (occurrence: ES)
  Receive Date: 20220922
  Receipt Date: 20220922
  Transmission Date: 20221027
  Serious: Yes (Other)
  Sender: FDA-Public Use
  Company Number: None

PATIENT
  Age: 78 Year
  Sex: Female
  Weight: 64 kg

DRUGS (1)
  1. CAPECITABINE [Suspect]
     Active Substance: CAPECITABINE
     Indication: Breast cancer
     Dosage: CICLOS DE 1650 MG C/12 H DURANTE 14 DIAS (CYCLES OF 1650 MG W/12 H DURING 14 DAYS)
     Route: 048
     Dates: start: 20220615

REACTIONS (4)
  - Ear pain [Recovering/Resolving]
  - Facial paralysis [Recovering/Resolving]
  - Dizziness [Recovered/Resolved]
  - Hypoacusis [Recovering/Resolving]

NARRATIVE: CASE EVENT DATE: 20220819
